FAERS Safety Report 4689591-3 (Version None)
Quarter: 2005Q2

REPORT INFORMATION
  Report Type: 
  Country: None (occurrence: None)
  Receive Date: 20050613
  Receipt Date: 20050613
  Transmission Date: 20051028
  Serious: Yes (Other)
  Sender: FDA-Public Use
  Company Number: None

PATIENT
  Sex: Female
  Weight: 65.5 kg

DRUGS (5)
  1. MITOMYCIN-C BULK POWDER [Suspect]
     Indication: ANAL CANCER
     Dosage: 10 MG/M2 I.V. BOL;US ON DAYS 1 AND 29 (NOT TO EXCEED 20 MG PER COURSE)
     Route: 040
     Dates: start: 20050425
  2. FLUOROURACIL [Suspect]
     Indication: ANAL CANCER
     Dosage: 1000 MG/M2/DAY BY CONTINUOUS INFUSION ON DAYS 1-4 AND 29-32.
     Dates: start: 20050405
  3. ATENOLOL [Concomitant]
  4. ENALAPRIL MALEATE [Concomitant]
  5. HYDROCHLOROTHIAZIDE [Concomitant]

REACTIONS (11)
  - ABDOMINAL PAIN [None]
  - ASTHENIA [None]
  - CHILLS [None]
  - DIARRHOEA [None]
  - FEBRILE NEUTROPENIA [None]
  - GASTROINTESTINAL DISORDER [None]
  - HYPOTENSION [None]
  - NAUSEA [None]
  - PYREXIA [None]
  - RADIATION SKIN INJURY [None]
  - RECTAL HAEMORRHAGE [None]
